FAERS Safety Report 18615040 (Version 1)
Quarter: 2020Q4

REPORT INFORMATION
  Report Type: Spontaneous
  Country: US (occurrence: US)
  Receive Date: 20201214
  Receipt Date: 20201214
  Transmission Date: 20210114
  Serious: No
  Sender: FDA-Public Use
  Company Number: US-TAKEDA-2020TUS054086

PATIENT
  Sex: Male
  Weight: 145.13 kg

DRUGS (21)
  1. AMBIEN [Concomitant]
     Active Substance: ZOLPIDEM TARTRATE
  2. ZOFRAN [Concomitant]
     Active Substance: ONDANSETRON HYDROCHLORIDE
  3. DIPHENHYDRAMINE. [Concomitant]
     Active Substance: DIPHENHYDRAMINE
  4. HEPARIN [Concomitant]
     Active Substance: HEPARIN SODIUM
  5. NORVASC [Concomitant]
     Active Substance: AMLODIPINE BESYLATE
  6. TYNELOL [Concomitant]
     Active Substance: ACETAMINOPHEN
  7. GLUCOSAMINE + CHONDROITIN + MSM [Concomitant]
  8. SOLU-MEDROL [Concomitant]
     Active Substance: METHYLPREDNISOLONE SODIUM SUCCINATE
  9. GAMMAGARD LIQUID [Suspect]
     Active Substance: HUMAN IMMUNOGLOBULIN G
     Indication: HEMIPLEGIA
     Dosage: 95 GRAM
     Route: 042
     Dates: start: 20190614
  10. ACETAMINOPHEN. [Concomitant]
     Active Substance: ACETAMINOPHEN
  11. GABAPENTIN. [Concomitant]
     Active Substance: GABAPENTIN
  12. GAMMAGARD LIQUID [Suspect]
     Active Substance: HUMAN IMMUNOGLOBULIN G
     Indication: POLYNEUROPATHY
  13. SODIUM CHLORIDE. [Concomitant]
     Active Substance: SODIUM CHLORIDE
  14. TURMERIC [CURCUMA LONGA RHIZOME] [Concomitant]
     Active Substance: HERBALS\TURMERIC
  15. EPINEPHRINE. [Concomitant]
     Active Substance: EPINEPHRINE
  16. DULOXETINE. [Concomitant]
     Active Substance: DULOXETINE
  17. PROPANOLOL [PROPRANOLOL] [Concomitant]
     Active Substance: PROPRANOLOL HYDROCHLORIDE
  18. GAMMAGARD LIQUID [Suspect]
     Active Substance: HUMAN IMMUNOGLOBULIN G
     Indication: SELECTIVE IGG SUBCLASS DEFICIENCY
  19. LIDOCAINE. [Concomitant]
     Active Substance: LIDOCAINE
  20. OMEPRAZOLE. [Concomitant]
     Active Substance: OMEPRAZOLE
  21. ADDERALL [Concomitant]
     Active Substance: AMPHETAMINE ASPARTATE\AMPHETAMINE SULFATE\DEXTROAMPHETAMINE SACCHARATE\DEXTROAMPHETAMINE SULFATE

REACTIONS (1)
  - Poor venous access [Unknown]
